FAERS Safety Report 12208108 (Version 1)
Quarter: 2016Q1

REPORT INFORMATION
  Report Type: Spontaneous
  Country: US (occurrence: US)
  Receive Date: 20160324
  Receipt Date: 20160324
  Transmission Date: 20160526
  Serious: No
  Sender: FDA-Public Use
  Company Number: US-WARNER CHILCOTT, LLC-1049608

PATIENT
  Sex: Female

DRUGS (1)
  1. ESTRACE [Suspect]
     Active Substance: ESTRADIOL
     Route: 067

REACTIONS (5)
  - Mood altered [Unknown]
  - Lethargy [Unknown]
  - Wrong technique in product usage process [None]
  - Peripheral swelling [Unknown]
  - Hot flush [Unknown]
